FAERS Safety Report 4572222-0 (Version None)
Quarter: 2005Q1

REPORT INFORMATION
  Report Type: 
  Country: None (occurrence: None)
  Receive Date: 20050203
  Receipt Date: 20050128
  Transmission Date: 20050727
  Serious: Yes (Hospitalization)
  Sender: FDA-Public Use
  Company Number: DEWYE381931JAN05

PATIENT
  Age: 54 Year
  Sex: Female

DRUGS (1)
  1. TREVILOR RETARD (VENLAFAXINE HYDROCHLORIDE, CAPSULE, EXTENDED RELEASE) [Suspect]
     Indication: DEPRESSION
     Dosage: 150 MG DAILY
     Dates: start: 20041228

REACTIONS (10)
  - CATATONIA [None]
  - ELEVATED MOOD [None]
  - IMPULSE-CONTROL DISORDER [None]
  - INCOHERENT [None]
  - LOOSE ASSOCIATIONS [None]
  - PERSEVERATION [None]
  - SPEECH DISORDER [None]
  - STEREOTYPIC MOVEMENT DISORDER [None]
  - STUPOR [None]
  - THINKING ABNORMAL [None]
